FAERS Safety Report 10576567 (Version 2)
Quarter: 2015Q1

REPORT INFORMATION
  Report Type: Spontaneous
  Country: ES (occurrence: ES)
  Receive Date: 20141111
  Receipt Date: 20150312
  Transmission Date: 20150720
  Serious: Yes (Other)
  Sender: FDA-Public Use
  Company Number: ES-TAKEDA-2014TEU009742

PATIENT
  Age: 62 Year
  Sex: Female

DRUGS (1)
  1. TACHOSIL [Suspect]
     Active Substance: FIBRINOGEN HUMAN\THROMBIN HUMAN
     Indication: PRODUCT USED FOR UNKNOWN INDICATION
     Dosage: UNK
     Route: 065

REACTIONS (5)
  - Localised intraabdominal fluid collection [Unknown]
  - Atelectasis [Unknown]
  - Inflammation [Unknown]
  - Pleural effusion [Unknown]
  - Peritoneal disorder [Unknown]
